FAERS Safety Report 16465007 (Version 1)
Quarter: 2019Q2

REPORT INFORMATION
  Report Type: Spontaneous
  Country: US (occurrence: US)
  Receive Date: 20190621
  Receipt Date: 20190621
  Transmission Date: 20190711
  Serious: Yes (Other)
  Sender: FDA-Public Use
  Company Number: US-LA JOLLA PHARMACEUTICAL COMPANY-0000307

PATIENT
  Age: 37 Year
  Sex: Female

DRUGS (4)
  1. VASOPRESSIN. [Concomitant]
     Active Substance: VASOPRESSIN
     Dosage: 0.04 UNITS/MIN, UNK
     Route: 042
     Dates: start: 20190429, end: 20190430
  2. GIAPREZA [Suspect]
     Active Substance: ANGIOTENSIN II
     Indication: SEPSIS
     Dosage: 12.5 NG/KG/MIN, UNK
     Dates: start: 20190429, end: 20190430
  3. NOREPINEPHRINE. [Concomitant]
     Active Substance: NOREPINEPHRINE
     Dosage: 0.05-0.62 MCG/KG/MIN
     Route: 042
     Dates: start: 20190429, end: 20190430
  4. GIAPREZA [Suspect]
     Active Substance: ANGIOTENSIN II
     Indication: HYPOTENSION

REACTIONS (2)
  - Thrombosis [Not Recovered/Not Resolved]
  - Dry gangrene [Unknown]

NARRATIVE: CASE EVENT DATE: 20190430
